FAERS Safety Report 5470737-4 (Version None)
Quarter: 2007Q3

REPORT INFORMATION
  Report Type: 
  Country: None (occurrence: None)
  Receive Date: 20070928
  Receipt Date: 20070925
  Transmission Date: 20080115
  Serious: Yes (Life-Threatening)
  Sender: FDA-Public Use
  Company Number: IT-JNJFOC-20070905119

PATIENT
  Age: 93 Year
  Sex: Female

DRUGS (5)
  1. TAVANIC [Suspect]
     Indication: PNEUMONIA
     Route: 042
  2. MOXIFLOXACIN HCL [Suspect]
     Indication: PNEUMONIA
     Route: 048
  3. CEFTRIAXONE SODIUM [Suspect]
     Indication: PNEUMONIA
     Route: 042
  4. ENOXAPARIN SODIUM [Concomitant]
     Route: 058
  5. DIGOXIN [Concomitant]
     Route: 048

REACTIONS (2)
  - HEPATITIS CHOLESTATIC [None]
  - XEROPHTHALMIA [None]
